FAERS Safety Report 13334099 (Version 2)
Quarter: 2017Q1

REPORT INFORMATION
  Report Type: Report from Study
  Country: US (occurrence: US)
  Receive Date: 20170314
  Receipt Date: 20170321
  Transmission Date: 20170428
  Serious: Yes (Death, Hospitalization)
  Sender: FDA-Public Use
  Company Number: US-B.I. PHARMACEUTICALS,INC./RIDGEFIELD-2016-BI-30074BP

PATIENT
  Sex: Female

DRUGS (3)
  1. OFEV [Suspect]
     Active Substance: NINTEDANIB
     Route: 048
  2. OFEV [Suspect]
     Active Substance: NINTEDANIB
     Indication: IDIOPATHIC PULMONARY FIBROSIS
     Route: 048
     Dates: start: 20160401, end: 20170101
  3. REVATIO [Concomitant]
     Active Substance: SILDENAFIL CITRATE
     Indication: PRODUCT USED FOR UNKNOWN INDICATION
     Route: 065

REACTIONS (13)
  - Hypoxia [Fatal]
  - Bacteraemia [Fatal]
  - Bacterial infection [Fatal]
  - Adverse drug reaction [Unknown]
  - Respiratory failure [Fatal]
  - Gastrointestinal disorder [Unknown]
  - Sepsis [Unknown]
  - Drug ineffective [Unknown]
  - Septic shock [Fatal]
  - Diarrhoea [Unknown]
  - Pulmonary hypertension [Fatal]
  - Pneumonia [Fatal]
  - Product quality issue [Unknown]
